FAERS Safety Report 4534773-4 (Version None)
Quarter: 2004Q4

REPORT INFORMATION
  Report Type: 
  Country: None (occurrence: None)
  Receive Date: 20041222
  Receipt Date: 20040223
  Transmission Date: 20050328
  Serious: No
  Sender: FDA-Public Use
  Company Number: US-BRISTOL-MYERS SQUIBB COMPANY-12515268

PATIENT
  Age: 51 Year
  Sex: Male
  Weight: 87 kg

DRUGS (3)
  1. PRAVACHOL [Suspect]
     Indication: BLOOD CHOLESTEROL INCREASED
     Route: 048
     Dates: end: 20040424
  2. TENORMIN [Concomitant]
     Route: 048
  3. COZAAR [Concomitant]
     Route: 048

REACTIONS (1)
  - RASH PRURITIC [None]
